FAERS Safety Report 22284028 (Version 2)
Quarter: 2023Q2

REPORT INFORMATION
  Report Type: Spontaneous
  Country: US (occurrence: US)
  Receive Date: 20230504
  Receipt Date: 20230628
  Transmission Date: 20230722
  Serious: Yes (Other)
  Sender: FDA-Public Use
  Company Number: US-SA-SAC20230501000616

PATIENT
  Age: 43 Year
  Sex: Male

DRUGS (4)
  1. FABRAZYME [Suspect]
     Active Substance: AGALSIDASE BETA
     Indication: Fabry^s disease
     Dosage: 93 MG QOW
     Route: 041
     Dates: start: 20210521
  2. FABRAZYME [Suspect]
     Active Substance: AGALSIDASE BETA
     Dosage: 70 MG, QOW
     Route: 042
     Dates: start: 202207
  3. FABRAZYME [Suspect]
     Active Substance: AGALSIDASE BETA
     Dosage: 93 MG, QOW
     Route: 042
     Dates: start: 202207
  4. FABRAZYME [Suspect]
     Active Substance: AGALSIDASE BETA
     Dosage: 23 MG, QOW
     Route: 042

REACTIONS (10)
  - Dialysis [Unknown]
  - Skin irritation [Unknown]
  - Fluid retention [Unknown]
  - Weight increased [Unknown]
  - Erythema [Unknown]
  - Feeling hot [Unknown]
  - Heart rate increased [Unknown]
  - Paraesthesia [Unknown]
  - Burning sensation [Unknown]
  - Inappropriate schedule of product administration [Unknown]

NARRATIVE: CASE EVENT DATE: 20230425
